FAERS Safety Report 20890892 (Version 1)
Quarter: 2022Q2

REPORT INFORMATION
  Report Type: Spontaneous
  Country: JP (occurrence: JP)
  Receive Date: 20220530
  Receipt Date: 20220530
  Transmission Date: 20220721
  Serious: Yes (Other)
  Sender: FDA-Public Use
  Company Number: JP-PADAGIS-2022PAD00082

PATIENT

DRUGS (1)
  1. DOXORUBICIN [Suspect]
     Active Substance: DOXORUBICIN
     Indication: Neurofibrosarcoma
     Dosage: UNK
     Route: 065

REACTIONS (5)
  - Disease progression [Recovering/Resolving]
  - Neurofibrosarcoma [Recovering/Resolving]
  - Atelectasis [Unknown]
  - Respiratory failure [Recovering/Resolving]
  - Drug ineffective for unapproved indication [Unknown]
